FAERS Safety Report 19484745 (Version 1)
Quarter: 2021Q3

REPORT INFORMATION
  Report Type: Spontaneous
  Country: GB (occurrence: GB)
  Receive Date: 20210702
  Receipt Date: 20210702
  Transmission Date: 20211014
  Serious: Yes (Hospitalization)
  Sender: FDA-Public Use
  Company Number: GB-LUPIN PHARMACEUTICALS INC.-2021-10730

PATIENT
  Age: 48 Year
  Sex: Female

DRUGS (9)
  1. AZITHROMYCIN ANHYDROUS. [Suspect]
     Active Substance: AZITHROMYCIN ANHYDROUS
     Indication: HERPES SIMPLEX
  2. FLUCLOXACILLIN [Suspect]
     Active Substance: FLUCLOXACILLIN
     Indication: GASTROENTERITIS SALMONELLA
     Dosage: UNK
     Route: 042
  3. ACICLOVIR [Suspect]
     Active Substance: ACYCLOVIR
     Indication: GASTROENTERITIS SALMONELLA
     Dosage: UNK
     Route: 048
  4. AZITHROMYCIN ANHYDROUS. [Suspect]
     Active Substance: AZITHROMYCIN ANHYDROUS
     Indication: CELLULITIS
  5. AZITHROMYCIN ANHYDROUS. [Suspect]
     Active Substance: AZITHROMYCIN ANHYDROUS
     Indication: GASTROENTERITIS SALMONELLA
     Dosage: UNK
     Route: 048
  6. FLUCLOXACILLIN [Suspect]
     Active Substance: FLUCLOXACILLIN
     Indication: HERPES SIMPLEX
  7. ACICLOVIR [Suspect]
     Active Substance: ACYCLOVIR
     Indication: CELLULITIS
  8. FLUCLOXACILLIN [Suspect]
     Active Substance: FLUCLOXACILLIN
     Indication: CELLULITIS
  9. ACICLOVIR [Suspect]
     Active Substance: ACYCLOVIR
     Indication: HERPES SIMPLEX

REACTIONS (1)
  - Drug ineffective [Unknown]
